FAERS Safety Report 6033200-8 (Version None)
Quarter: 2009Q1

REPORT INFORMATION
  Report Type: 
  Country: None (occurrence: None)
  Receive Date: 20090109
  Receipt Date: 20090106
  Transmission Date: 20090719
  Serious: Yes (Other)
  Sender: FDA-Public Use
  Company Number: DE-GILEAD-2009-0019749

PATIENT
  Sex: Male
  Weight: 77 kg

DRUGS (5)
  1. ATRIPLA [Suspect]
     Dates: start: 20080924, end: 20081018
  2. TRUVADA [Suspect]
     Dates: start: 20080711, end: 20080923
  3. COTRIM [Concomitant]
     Indication: PNEUMOCYSTIS JIROVECI PNEUMONIA
     Dates: start: 20080711, end: 20081018
  4. COTRIM [Concomitant]
     Indication: TOXOPLASMOSIS PROPHYLAXIS
  5. SUSTIVA [Concomitant]
     Dates: start: 20080711, end: 20080923

REACTIONS (1)
  - THROMBOCYTOPENIA [None]
